FAERS Safety Report 25474310 (Version 1)
Quarter: 2025Q2

REPORT INFORMATION
  Report Type: Spontaneous
  Country: US (occurrence: None)
  Receive Date: 20250624
  Receipt Date: 20250624
  Transmission Date: 20250716
  Serious: Yes (Hospitalization)
  Sender: FDA-CTU
  Company Number: None

PATIENT
  Age: 74 Year
  Sex: Male
  Weight: 66.7 kg

DRUGS (50)
  1. NIVOLUMAB [Suspect]
     Active Substance: NIVOLUMAB
     Indication: Renal cell carcinoma
     Route: 042
     Dates: start: 20231215
  2. CABOZANTINIB [Suspect]
     Active Substance: CABOZANTINIB
     Indication: Renal cell carcinoma
     Dosage: FREQUENCY : DAILY;?
     Route: 048
     Dates: start: 20231215, end: 20240724
  3. ONDANSETRON [Concomitant]
     Active Substance: ONDANSETRON
  4. PROCHLORPERAZINE [Concomitant]
     Active Substance: PROCHLORPERAZINE
  5. OXYBUTYNIN CHLORIDE [Concomitant]
     Active Substance: OXYBUTYNIN CHLORIDE
  6. PRAVASTATIN [Concomitant]
     Active Substance: PRAVASTATIN
  7. METOPROLOL SUCCINATE [Concomitant]
     Active Substance: METOPROLOL SUCCINATE
  8. LOSARTAN [Concomitant]
     Active Substance: LOSARTAN
  9. FINASTERIDE [Concomitant]
     Active Substance: FINASTERIDE
  10. RIVAROXABAN [Concomitant]
     Active Substance: RIVAROXABAN
  11. CHOLECALCIFEROL [Concomitant]
     Active Substance: CHOLECALCIFEROL
  12. LUTEIN [Concomitant]
     Active Substance: LUTEIN
  13. ALIGN [Concomitant]
     Active Substance: BIFIDOBACTERIUM LONGUM SUBSP. INFANTIS
  14. TYLENOL [Concomitant]
     Active Substance: ACETAMINOPHEN
  15. MELATONIN [Concomitant]
     Active Substance: MELATONIN
  16. LOPERAMIDE [Concomitant]
     Active Substance: LOPERAMIDE
  17. Cera Ve lotion [Concomitant]
  18. CORICIDIN HBP [Concomitant]
     Active Substance: ACETAMINOPHEN\CHLORPHENIRAMINE MALEATE
  19. PREDNISONE [Concomitant]
     Active Substance: PREDNISONE
  20. IMODIUM [Concomitant]
     Active Substance: LOPERAMIDE HYDROCHLORIDE
  21. UREA [Concomitant]
     Active Substance: UREA
  22. SYNTHROID [Concomitant]
     Active Substance: LEVOTHYROXINE SODIUM
  23. ACETAMINOPHEN [Concomitant]
     Active Substance: ACETAMINOPHEN
  24. LACTATED RINGERS SOLUTION [Concomitant]
     Active Substance: CALCIUM CHLORIDE\POTASSIUM CHLORIDE\SODIUM CHLORIDE\SODIUM LACTATE
  25. ZOSYN [Concomitant]
     Active Substance: PIPERACILLIN SODIUM\TAZOBACTAM SODIUM
  26. SODIUM CHLORIDE [Concomitant]
     Active Substance: SODIUM CHLORIDE
  27. ACETAMINOPHEN [Concomitant]
     Active Substance: ACETAMINOPHEN
  28. FAMOTIDINE [Concomitant]
     Active Substance: FAMOTIDINE
  29. HEPARIN [Concomitant]
     Active Substance: HEPARIN SODIUM
  30. MELATONIN [Concomitant]
     Active Substance: MELATONIN
  31. MICAFUNGIN [Concomitant]
     Active Substance: MICAFUNGIN SODIUM
  32. ZOSYN [Concomitant]
     Active Substance: PIPERACILLIN SODIUM\TAZOBACTAM SODIUM
  33. FENTANYL [Concomitant]
     Active Substance: FENTANYL
  34. LACTATED RINGERS SOLUTION [Concomitant]
     Active Substance: CALCIUM CHLORIDE\POTASSIUM CHLORIDE\SODIUM CHLORIDE\SODIUM LACTATE
  35. LINEZOLID [Concomitant]
     Active Substance: LINEZOLID
  36. MAGNESIUM SULFATE [Concomitant]
     Active Substance: MAGNESIUM SULFATE
  37. POTASSIUM CHLORIDE [Concomitant]
     Active Substance: POTASSIUM CHLORIDE
  38. SODIUM PHOSPATE [Concomitant]
  39. ADULT CPN [Concomitant]
  40. CEFDINIR [Concomitant]
     Active Substance: CEFDINIR
  41. METRONIDAZOLE [Concomitant]
     Active Substance: METRONIDAZOLE
  42. LOVENOX [Concomitant]
     Active Substance: ENOXAPARIN SODIUM
  43. FLUCONAZOLE [Concomitant]
     Active Substance: FLUCONAZOLE
  44. LEVAQUIN [Concomitant]
     Active Substance: LEVOFLOXACIN
  45. MIRTAZAPINE [Concomitant]
     Active Substance: MIRTAZAPINE
  46. BENADRYL [Concomitant]
     Active Substance: DIPHENHYDRAMINE HYDROCHLORIDE
  47. HYDROMORPHONE [Concomitant]
     Active Substance: HYDROMORPHONE
  48. LACTATED RINGERS SOLUTION [Concomitant]
     Active Substance: CALCIUM CHLORIDE\POTASSIUM CHLORIDE\SODIUM CHLORIDE\SODIUM LACTATE
  49. ONDANSETRON [Concomitant]
     Active Substance: ONDANSETRON
  50. POTASSSIUM CHLORIDE CR [Concomitant]

REACTIONS (3)
  - Gastrointestinal inflammation [None]
  - Malignant neoplasm progression [None]
  - Haemorrhage [None]

NARRATIVE: CASE EVENT DATE: 20250623
